FAERS Safety Report 24203876 (Version 1)
Quarter: 2024Q3

REPORT INFORMATION
  Report Type: Spontaneous
  Country: US (occurrence: US)
  Receive Date: 20240813
  Receipt Date: 20240813
  Transmission Date: 20241017
  Serious: Yes (Hospitalization)
  Sender: ROCHE
  Company Number: US-ROCHE-10000050557

PATIENT
  Age: 61 Year
  Sex: Male
  Weight: 93.89 kg

DRUGS (4)
  1. POLIVY [Suspect]
     Active Substance: POLATUZUMAB VEDOTIN-PIIQ
     Indication: B-cell lymphoma
     Dosage: 1.8 MG/KG ONE TIME DOSE
     Route: 065
     Dates: start: 20240717
  2. RITUXAN [Suspect]
     Active Substance: RITUXIMAB
     Indication: B-cell lymphoma
     Dosage: 375 MG/M2
     Route: 065
     Dates: start: 20240716
  3. DOXORUBICIN [Concomitant]
     Active Substance: DOXORUBICIN
     Indication: B-cell lymphoma
     Dosage: 50 MG/M2
     Route: 065
     Dates: start: 20240717
  4. CYTOXAN [Concomitant]
     Active Substance: CYCLOPHOSPHAMIDE
     Indication: B-cell lymphoma
     Dosage: 750 MG/M2
     Route: 065
     Dates: start: 20240717

REACTIONS (2)
  - Pancreatitis [Unknown]
  - Hypomagnesaemia [Unknown]
